FAERS Safety Report 13255882 (Version 1)
Quarter: 2017Q1

REPORT INFORMATION
  Report Type: Spontaneous
  Country: US (occurrence: US)
  Receive Date: 20170221
  Receipt Date: 20170221
  Transmission Date: 20170428
  Serious: No
  Sender: FDA-Public Use
  Company Number: US-BAYER-2017-030064

PATIENT
  Age: 3 Year
  Sex: Female

DRUGS (1)
  1. MIRALAX [Suspect]
     Active Substance: POLYETHYLENE GLYCOL 3350
     Dosage: UNK
     Route: 065

REACTIONS (7)
  - Mania [Unknown]
  - Product use issue [Unknown]
  - Paranoia [Unknown]
  - Psychiatric symptom [Unknown]
  - Mood swings [Unknown]
  - Anger [Unknown]
  - Aggression [Unknown]
